FAERS Safety Report 19999767 (Version 3)
Quarter: 2022Q1

REPORT INFORMATION
  Report Type: Spontaneous
  Country: PL (occurrence: None)
  Receive Date: 20211027
  Receipt Date: 20220223
  Transmission Date: 20220423
  Serious: Yes (Other)
  Sender: FDA-Public Use
  Company Number: PL-ROCHE-2942890

PATIENT
  Age: 71 Year
  Sex: Female

DRUGS (4)
  1. PERJETA [Suspect]
     Active Substance: PERTUZUMAB
     Indication: HER2 positive breast cancer
     Route: 065
     Dates: start: 20161007
  2. PERJETA [Suspect]
     Active Substance: PERTUZUMAB
     Indication: Metastases to lung
  3. HERCEPTIN [Suspect]
     Active Substance: TRASTUZUMAB
     Indication: HER2 positive breast cancer
     Route: 058
     Dates: start: 20161007
  4. HERCEPTIN [Suspect]
     Active Substance: TRASTUZUMAB
     Indication: Metastases to lung

REACTIONS (1)
  - Anaphylactic shock [Unknown]

NARRATIVE: CASE EVENT DATE: 20210923
